FAERS Safety Report 16127059 (Version 1)
Quarter: 2019Q2

REPORT INFORMATION
  Report Type: Spontaneous
  Country: US (occurrence: US)
  Receive Date: 20190327
  Receipt Date: 20190327
  Transmission Date: 20190711
  Serious: Yes (Hospitalization)
  Sender: FDA-Public Use
  Company Number: None

PATIENT
  Sex: Female

DRUGS (6)
  1. BENZTROPINE, CALCIUM [Concomitant]
  2. HALOPERIDOL, IRON [Concomitant]
  3. URSODIOL. [Concomitant]
     Active Substance: URSODIOL
  4. OCALIVA [Suspect]
     Active Substance: OBETICHOLIC ACID
     Indication: PRIMARY BILIARY CHOLANGITIS
     Route: 048
     Dates: start: 20171205
  5. FEROSUL, FLUOXETINE [Concomitant]
  6. MONONESSA, TENOFOVIR [Concomitant]

REACTIONS (1)
  - Pruritus [None]
